FAERS Safety Report 12641877 (Version 2)
Quarter: 2016Q3

REPORT INFORMATION
  Report Type: Report from Study
  Country: CA (occurrence: CA)
  Receive Date: 20160810
  Receipt Date: 20160909
  Transmission Date: 20161109
  Serious: Yes (Other)
  Sender: FDA-Public Use
  Company Number: CA-JNJFOC-20160802370

PATIENT
  Age: 27 Year
  Sex: Female
  Weight: 79.4 kg

DRUGS (11)
  1. PREVACID [Concomitant]
     Active Substance: LANSOPRAZOLE
     Route: 065
  2. HALDOL [Concomitant]
     Active Substance: HALOPERIDOL
     Route: 065
  3. HYDROMORPHONE [Concomitant]
     Active Substance: HYDROMORPHONE
     Route: 065
  4. TRIZAC [Concomitant]
     Route: 065
  5. REMICADE [Suspect]
     Active Substance: INFLIXIMAB
     Indication: CROHN^S DISEASE
     Dosage: 27TH INFUSION
     Route: 042
     Dates: start: 20160906
  6. REMICADE [Suspect]
     Active Substance: INFLIXIMAB
     Indication: CROHN^S DISEASE
     Dosage: 25TH DOSE
     Route: 042
     Dates: start: 20160629
  7. REMICADE [Suspect]
     Active Substance: INFLIXIMAB
     Indication: CROHN^S DISEASE
     Dosage: 26TH INFUSION
     Route: 042
     Dates: start: 20160804
  8. SEROQUEL [Concomitant]
     Active Substance: QUETIAPINE FUMARATE
     Route: 065
  9. PARACETAMOL [Concomitant]
     Active Substance: ACETAMINOPHEN
     Route: 065
  10. REMICADE [Suspect]
     Active Substance: INFLIXIMAB
     Indication: CROHN^S DISEASE
     Route: 042
     Dates: start: 20130619
  11. KEFLEX [Suspect]
     Active Substance: CEPHALEXIN
     Indication: PRODUCT USED FOR UNKNOWN INDICATION
     Route: 065

REACTIONS (10)
  - Abdominal discomfort [Unknown]
  - General physical health deterioration [Recovered/Resolved]
  - Product use issue [Unknown]
  - Nausea [Unknown]
  - Frequent bowel movements [Recovered/Resolved]
  - General physical health deterioration [Unknown]
  - Off label use [Unknown]
  - Abdominal pain [Recovering/Resolving]
  - Device related infection [Recovering/Resolving]
  - Change of bowel habit [Unknown]

NARRATIVE: CASE EVENT DATE: 20130619
